FAERS Safety Report 5040421-X (Version None)
Quarter: 2006Q2

REPORT INFORMATION
  Report Type: 
  Country: None (occurrence: None)
  Receive Date: 20060630
  Receipt Date: 20060627
  Transmission Date: 20061013
  Serious: Yes (Other)
  Sender: FDA-Public Use
  Company Number: GB-GLAXOSMITHKLINE-B0428994A

PATIENT
  Age: 29 Year
  Sex: Female

DRUGS (1)
  1. BECOTIDE [Suspect]
     Indication: ASTHMA
     Route: 055

REACTIONS (3)
  - ASTHMA [None]
  - LOWER RESPIRATORY TRACT INFECTION [None]
  - OVERDOSE [None]
